FAERS Safety Report 6100925-5 (Version None)
Quarter: 2009Q1

REPORT INFORMATION
  Report Type: 
  Country: None (occurrence: None)
  Receive Date: 20090304
  Receipt Date: 20090223
  Transmission Date: 20090719
  Serious: Yes (Hospitalization)
  Sender: FDA-Public Use
  Company Number: SE-JNJFOC-20090205765

PATIENT
  Sex: Female
  Weight: 55.7 kg

DRUGS (9)
  1. REMICADE [Suspect]
     Route: 042
  2. REMICADE [Suspect]
     Route: 042
  3. REMICADE [Suspect]
     Route: 042
  4. REMICADE [Suspect]
     Route: 042
  5. REMICADE [Suspect]
     Route: 042
  6. REMICADE [Suspect]
     Indication: CROHN'S DISEASE
     Route: 042
  7. IMUREL [Concomitant]
     Indication: CROHN'S DISEASE
     Route: 042
  8. BEHEPAN [Concomitant]
     Indication: UNEVALUABLE EVENT
  9. CALCICHEW D3 [Concomitant]
     Indication: OSTEOPOROSIS

REACTIONS (1)
  - COLECTOMY [None]
